FAERS Safety Report 9703884 (Version 1)
Quarter: 2013Q4

REPORT INFORMATION
  Report Type: Spontaneous
  Country: US (occurrence: None)
  Receive Date: 20131121
  Receipt Date: 20131121
  Transmission Date: 20140711
  Serious: Yes (Life-Threatening)
  Sender: FDA-Public Use
  Company Number: None

PATIENT
  Age: 59 Year
  Sex: 0

DRUGS (1)
  1. SODIUM FLUORIDE [Suspect]
     Indication: SENSITIVITY OF TEETH
     Dosage: ONCE DAILY
     Dates: start: 20131112, end: 20131120

REACTIONS (1)
  - Bronchospasm [None]
